FAERS Safety Report 5892873-0 (Version None)
Quarter: 2008Q3

REPORT INFORMATION
  Report Type: 
  Country: None (occurrence: None)
  Receive Date: 20080923
  Receipt Date: 20080911
  Transmission Date: 20090109
  Serious: No
  Sender: FDA-Public Use
  Company Number: US-BAYER-200826930NA

PATIENT
  Sex: Female

DRUGS (1)
  1. YAZ [Suspect]
     Indication: CONTRACEPTION
     Route: 048
     Dates: start: 20080615

REACTIONS (6)
  - DIZZINESS [None]
  - FOOD CRAVING [None]
  - HYPOAESTHESIA [None]
  - NAUSEA [None]
  - POST ABORTION HAEMORRHAGE [None]
  - PREGNANCY ON ORAL CONTRACEPTIVE [None]
